FAERS Safety Report 8307107-7 (Version None)
Quarter: 2012Q2

REPORT INFORMATION
  Report Type: 
  Country: None (occurrence: None)
  Receive Date: 20120424
  Receipt Date: 20120420
  Transmission Date: 20120825
  Serious: Yes (Death)
  Sender: FDA-Public Use
  Company Number: PHHY2012NL033945

PATIENT
  Sex: Male

DRUGS (4)
  1. ZOMETA [Suspect]
     Dosage: 4MG/ 100ML ONCE PER 56 DAYS
     Dates: start: 20120104
  2. ZOMETA [Suspect]
     Dosage: 4MG/ 100ML ONCE PER 56 DAYS
     Dates: start: 20120305
  3. ZOMETA [Suspect]
     Indication: PROSTATE CANCER METASTATIC
     Dosage: 4MG/ 100ML ONCE PER 56 DAYS
  4. ZOMETA [Suspect]
     Dosage: 4MG/ 100ML ONCE PER 56 DAYS
     Dates: start: 20110106

REACTIONS (1)
  - DEATH [None]
